FAERS Safety Report 21582712 (Version 1)
Quarter: 2022Q4

REPORT INFORMATION
  Report Type: Spontaneous
  Country: US (occurrence: None)
  Receive Date: 20221109
  Receipt Date: 20221109
  Transmission Date: 20230113
  Serious: Yes (Death)
  Sender: FDA-Public Use
  Company Number: None

PATIENT
  Sex: Male
  Weight: 92.53 kg

DRUGS (10)
  1. TEMOZOLOMIDE [Suspect]
     Active Substance: TEMOZOLOMIDE
     Indication: Brain neoplasm malignant
     Dosage: FREQUENCY : DAILY;?
     Route: 048
     Dates: start: 202209
  2. ALLOPURINOL [Concomitant]
     Active Substance: ALLOPURINOL
  3. DECADRON [Concomitant]
     Active Substance: DEXAMETHASONE
  4. MULTIVITAMINS/MINERALS [Concomitant]
  5. OXYCODONE [Concomitant]
     Active Substance: OXYCODONE
  6. PEPCID [Concomitant]
     Active Substance: FAMOTIDINE
  7. SULFAMETHOXAZOLE [Concomitant]
     Active Substance: SULFAMETHOXAZOLE
  8. TRIMETHOPRIM [Concomitant]
     Active Substance: TRIMETHOPRIM
  9. TYLENOL [Concomitant]
     Active Substance: ACETAMINOPHEN
  10. ZOFRAN [Concomitant]
     Active Substance: ONDANSETRON HYDROCHLORIDE

REACTIONS (1)
  - Death [None]
